FAERS Safety Report 8880138 (Version 1)
Quarter: 2012Q4

REPORT INFORMATION
  Report Type: 
  Country: US (occurrence: US)
  Receive Date: 20121031
  Receipt Date: 20121031
  Transmission Date: 20130627
  Serious: Yes (Other)
  Sender: FDA-Public Use
  Company Number: US-ROCHE-1145557

PATIENT
  Age: 52 Year
  Sex: Male
  Weight: 118.86 kg

DRUGS (7)
  1. ACTEMRA [Suspect]
     Indication: PRODUCT USED FOR UNKNOWN INDICATION
     Route: 042
     Dates: start: 20120820
  2. ACTEMRA [Suspect]
     Route: 042
     Dates: start: 20120914
  3. ACTEMRA [Suspect]
     Route: 042
     Dates: start: 20121012
  4. ACTEMRA [Suspect]
     Route: 042
     Dates: start: 20121019
  5. INSULIN [Concomitant]
  6. METHOTREXATE [Concomitant]
     Indication: RHEUMATOID ARTHRITIS
     Route: 048
  7. LORTAB [Concomitant]
     Indication: ARTHRALGIA
     Route: 048

REACTIONS (1)
  - Pharyngeal oedema [Recovered/Resolved]
